FAERS Safety Report 19057663 (Version 5)
Quarter: 2021Q3

REPORT INFORMATION
  Report Type: Spontaneous
  Country: CA (occurrence: CA)
  Receive Date: 20210324
  Receipt Date: 20210928
  Transmission Date: 20211014
  Serious: Yes (Life-Threatening, Hospitalization, Disabling, Other)
  Sender: FDA-Public Use
  Company Number: CA-DSJP-DSU-2021-105871

PATIENT
  Age: 30 Year
  Sex: Male

DRUGS (16)
  1. NIACIN. [Suspect]
     Active Substance: NIACIN
     Indication: LOW DENSITY LIPOPROTEIN ABNORMAL
     Dosage: UNK
     Route: 065
  2. PRALUENT [Suspect]
     Active Substance: ALIROCUMAB
     Indication: RELAPSING-REMITTING MULTIPLE SCLEROSIS
     Dosage: 12 MG, QD, INTRAVENOUS DRIP
     Route: 058
  3. EICOSAPENTAENOIC ACID ETHYL ESTER [Suspect]
     Active Substance: ICOSAPENT ETHYL
     Indication: LOW DENSITY LIPOPROTEIN ABNORMAL
     Dosage: UNK
     Route: 065
  4. LIPITOR [Suspect]
     Active Substance: ATORVASTATIN CALCIUM
     Indication: LOW DENSITY LIPOPROTEIN
     Dosage: UNK
     Route: 065
  5. PRALUENT [Suspect]
     Active Substance: ALIROCUMAB
     Indication: LOW DENSITY LIPOPROTEIN ABNORMAL
     Dosage: 12 MG, QD, INTRAVENOUS DRIP
     Route: 058
  6. LOMITAPIDE MESILATE [Suspect]
     Active Substance: LOMITAPIDE MESYLATE
     Indication: LOW DENSITY LIPOPROTEIN ABNORMAL
     Dosage: UNK
     Route: 065
  7. PRAVASTATIN SODIUM. [Suspect]
     Active Substance: PRAVASTATIN SODIUM
     Indication: LOW DENSITY LIPOPROTEIN
     Dosage: UNK
     Route: 065
  8. LESCOL [Suspect]
     Active Substance: FLUVASTATIN SODIUM
     Indication: LOW DENSITY LIPOPROTEIN
     Dosage: UNK
     Route: 065
  9. MEVACOR [Suspect]
     Active Substance: LOVASTATIN
     Indication: LOW DENSITY LIPOPROTEIN
     Dosage: UNK
     Route: 065
  10. ROSUVASTATIN CALCIUM. [Suspect]
     Active Substance: ROSUVASTATIN CALCIUM
     Indication: LOW DENSITY LIPOPROTEIN
     Dosage: UNK
     Route: 065
  11. ZOCOR [Suspect]
     Active Substance: SIMVASTATIN
     Indication: LOW DENSITY LIPOPROTEIN ABNORMAL
     Dosage: UNK
     Route: 065
  12. REPATHA [Suspect]
     Active Substance: EVOLOCUMAB
     Indication: LOW DENSITY LIPOPROTEIN ABNORMAL
     Dosage: 1 ML, SINGLE
     Route: 065
  13. EZETIMIBE. [Suspect]
     Active Substance: EZETIMIBE
     Indication: LOW DENSITY LIPOPROTEIN
     Dosage: UNK
     Route: 065
  14. COLESEVELAM HYDROCHLORIDE. [Suspect]
     Active Substance: COLESEVELAM HYDROCHLORIDE
     Indication: LOW DENSITY LIPOPROTEIN ABNORMAL
     Route: 048
  15. LODALIS [Suspect]
     Active Substance: COLESEVELAM HYDROCHLORIDE
     Indication: LOW DENSITY LIPOPROTEIN ABNORMAL
     Dosage: UNK
     Route: 065
  16. OLESTYR [Suspect]
     Active Substance: CHOLESTYRAMINE
     Indication: LOW DENSITY LIPOPROTEIN ABNORMAL
     Dosage: UNK
     Route: 065

REACTIONS (3)
  - Cerebrovascular accident [Unknown]
  - Myocardial infarction [Unknown]
  - Drug ineffective [Unknown]
